FAERS Safety Report 4894562-8 (Version None)
Quarter: 2006Q1

REPORT INFORMATION
  Report Type: 
  Country: None (occurrence: None)
  Receive Date: 20060127
  Receipt Date: 20060124
  Transmission Date: 20060701
  Serious: Yes (Hospitalization)
  Sender: FDA-Public Use
  Company Number: NO-MERCK-0601NOR00024

PATIENT
  Age: 58 Year
  Sex: Female

DRUGS (8)
  1. VIOXX [Suspect]
     Indication: MYALGIA
     Route: 048
     Dates: start: 20010319, end: 20041006
  2. BUDESONIDE AND FORMOTEROL FUMARATE [Concomitant]
     Indication: ASTHMA
     Route: 055
  3. LEVOTHYROXINE SODIUM [Concomitant]
     Indication: HYPOTHYROIDISM
     Route: 065
     Dates: start: 19961106
  4. LANSOPRAZOLE [Concomitant]
     Indication: GASTRITIS
     Route: 065
  5. TOLTERODINE TARTRATE [Concomitant]
     Indication: URGE INCONTINENCE
     Route: 065
  6. CELECOXIB [Concomitant]
     Route: 065
     Dates: start: 20041006, end: 20050303
  7. FLUTICASONE PROPIONATE [Concomitant]
     Indication: ASTHMA
     Route: 065
  8. PREDNISOLONE [Concomitant]
     Indication: ASTHMA
     Route: 065

REACTIONS (2)
  - BRADYCARDIA [None]
  - CEREBRAL INFARCTION [None]
